FAERS Safety Report 12904920 (Version 1)
Quarter: 2016Q4

REPORT INFORMATION
  Report Type: Report from Study
  Country: BR (occurrence: BR)
  Receive Date: 20161102
  Receipt Date: 20161102
  Transmission Date: 20170207
  Serious: Yes (Other)
  Sender: FDA-Public Use
  Company Number: PHHY2016BR111010

PATIENT
  Sex: Female
  Weight: 54 kg

DRUGS (1)
  1. AFINITOR [Suspect]
     Active Substance: EVEROLIMUS
     Indication: BREAST CANCER
     Dosage: 10 MG, QD
     Route: 065
     Dates: start: 20160726

REACTIONS (5)
  - Contrast media reaction [Unknown]
  - Mouth injury [Unknown]
  - Swelling [Unknown]
  - Dysphonia [Unknown]
  - Throat lesion [Unknown]
